FAERS Safety Report 11272503 (Version 1)
Quarter: 2015Q3

REPORT INFORMATION
  Report Type: Spontaneous
  Country: PT (occurrence: PT)
  Receive Date: 20150715
  Receipt Date: 20150715
  Transmission Date: 20151125
  Serious: Yes (Other)
  Sender: FDA-Public Use
  Company Number: PT-ACTAVIS-2015-14560

PATIENT
  Age: 45 Year
  Sex: Female
  Weight: 66.5 kg

DRUGS (5)
  1. DOCETAXEL ACTAVIS [Suspect]
     Active Substance: DOCETAXEL
     Indication: BREAST CANCER
     Dosage: 133 MG, CYCLICAL
     Route: 042
     Dates: start: 20150619
  2. ONDANSETROM                        /00955301/ [Concomitant]
     Indication: PREMEDICATION
     Dosage: 8 MG, DAILY
     Route: 040
     Dates: start: 20150619
  3. TAVIST ALLERGY [Concomitant]
     Active Substance: CLEMASTINE FUMARATE
     Indication: PREMEDICATION
     Dosage: 2 MG, DAILY
     Route: 042
     Dates: start: 20150619
  4. RANITIDINE [Concomitant]
     Active Substance: RANITIDINE\RANITIDINE HYDROCHLORIDE
     Indication: PREMEDICATION
     Dosage: 50 MG, DAILY
     Route: 042
     Dates: start: 20150619
  5. DEXAMETASONA                       /00016001/ [Concomitant]
     Indication: PREMEDICATION
     Dosage: 12 MG, DAILY
     Route: 042
     Dates: start: 20150619

REACTIONS (3)
  - Throat tightness [Recovered/Resolved]
  - Cough [Recovered/Resolved]
  - Erythema [Recovered/Resolved]

NARRATIVE: CASE EVENT DATE: 20150619
